FAERS Safety Report 8597209 (Version 2)
Quarter: 2014Q1

REPORT INFORMATION
  Report Type: Spontaneous
  Country: US (occurrence: None)
  Receive Date: 20120323
  Receipt Date: 20130305
  Transmission Date: 20141002
  Serious: Yes (Other)
  Sender: FDA-Public Use
  Company Number: 163-21880-11071327

PATIENT
  Age: 80 Year
  Sex: Male
  Weight: 74.9 kg

DRUGS (1)
  1. REVLIMID [Suspect]
     Indication: PLASMA CELL MYELOMA
     Dosage: 10 MG, 21 IN 21 D, PO?
     Route: 048
     Dates: start: 20110616

REACTIONS (2)
  - Full blood count decreased [None]
  - Rash pruritic [None]
